FAERS Safety Report 6050850-3 (Version None)
Quarter: 2009Q1

REPORT INFORMATION
  Report Type: 
  Country: None (occurrence: None)
  Receive Date: 20090126
  Receipt Date: 20080430
  Transmission Date: 20090719
  Serious: No
  Sender: FDA-Public Use
  Company Number: US-TYCO HEALTHCARE/MALLINCKRODT-T200800757

PATIENT

DRUGS (5)
  1. OPTIRAY 300 [Suspect]
     Indication: SCAN BRAIN
     Dosage: 100 ML, SINGLE
     Route: 042
     Dates: start: 20080428, end: 20080428
  2. ZOLOFT [Concomitant]
  3. TYLENOL W/ CODEINE [Concomitant]
  4. LEVAQUIN [Concomitant]
  5. SINGULAIR [Concomitant]

REACTIONS (1)
  - FEELING HOT [None]
